FAERS Safety Report 4418083-1 (Version None)
Quarter: 2004Q3

REPORT INFORMATION
  Report Type: 
  Country: None (occurrence: None)
  Receive Date: 20040730
  Receipt Date: 20040720
  Transmission Date: 20050211
  Serious: Yes (Hospitalization)
  Sender: FDA-Public Use
  Company Number: DK-JNJFOC-20040705499

PATIENT
  Age: 25 Year
  Sex: Female

DRUGS (1)
  1. PEVARYL (ECONAZOLE NITRATE) OVULE [Suspect]
     Indication: VAGINAL MYCOSIS
     Dosage: 150 MG
     Dates: start: 20040630, end: 20040701

REACTIONS (3)
  - PALPITATIONS [None]
  - PARAESTHESIA ORAL [None]
  - THROAT TIGHTNESS [None]
